FAERS Safety Report 15294881 (Version 1)
Quarter: 2018Q4

REPORT INFORMATION
  Report Type: Spontaneous
  Country: JP (occurrence: JP)
  Receive Date: 20180820
  Receipt Date: 20180820
  Transmission Date: 20190204
  Serious: Yes (Hospitalization, Other)
  Sender: FDA-Public Use
  Company Number: JP-ROCHE-2167801

PATIENT
  Age: 92 Year
  Sex: Male
  Weight: 52.9 kg

DRUGS (23)
  1. KALIMATE [Suspect]
     Active Substance: CALCIUM POLYSTYRENE SULFONATE
     Route: 048
  2. DIART [Suspect]
     Active Substance: AZOSEMIDE
     Indication: CARDIAC FAILURE
     Dosage: 15-45 MG
     Route: 048
     Dates: start: 20180313
  3. CEFZON (JAPAN) [Concomitant]
     Indication: PRODUCT USED FOR UNKNOWN INDICATION
     Route: 065
     Dates: start: 20180418, end: 20180422
  4. URIEF [Suspect]
     Active Substance: SILODOSIN
     Indication: BENIGN PROSTATIC HYPERPLASIA
     Route: 048
     Dates: start: 20180304
  5. DIART [Suspect]
     Active Substance: AZOSEMIDE
     Route: 048
  6. ROZEREM [Concomitant]
     Active Substance: RAMELTEON
     Indication: INSOMNIA
     Route: 048
     Dates: start: 20180519
  7. FAMOTIDINE. [Concomitant]
     Active Substance: FAMOTIDINE
     Route: 048
  8. ARTIST [Suspect]
     Active Substance: CARVEDILOL
     Indication: HYPERTENSION
     Dosage: DATE OF LAST DOSE ADMINISTERED: 16/MAR/2018 (5 MG)
     Route: 048
  9. KAYTWO N [Suspect]
     Active Substance: MENATETRENONE
     Indication: PROTHROMBIN TIME PROLONGED
     Dosage: 10-20 MG?14/MAR/2018?26/MAR/2018?12/MAR/2018
     Route: 042
     Dates: start: 20180303
  10. FUROSEMIDE/POTASSIUM CHLORIDE [Suspect]
     Active Substance: FUROSEMIDE\POTASSIUM CHLORIDE
     Indication: CARDIAC FAILURE CHRONIC
     Dosage: 20-40 MG
     Route: 048
  11. KALIMATE [Suspect]
     Active Substance: CALCIUM POLYSTYRENE SULFONATE
     Indication: CHRONIC KIDNEY DISEASE
     Dosage: 5-10 MG
     Route: 048
     Dates: start: 20180331
  12. CELECOX [Suspect]
     Active Substance: CELECOXIB
     Route: 065
     Dates: end: 20180608
  13. EQUA [Suspect]
     Active Substance: VILDAGLIPTIN
     Indication: TYPE 2 DIABETES MELLITUS
     Route: 048
     Dates: start: 20180202
  14. FAMOTIDINE. [Concomitant]
     Active Substance: FAMOTIDINE
     Indication: GASTRIC ULCER
     Route: 048
  15. CELECOX [Suspect]
     Active Substance: CELECOXIB
     Indication: BACK PAIN
     Route: 065
     Dates: start: 20180312
  16. BELSOMRA [Suspect]
     Active Substance: SUVOREXANT
     Indication: INSOMNIA
     Route: 048
     Dates: start: 20180303, end: 20180309
  17. EQUA [Suspect]
     Active Substance: VILDAGLIPTIN
     Route: 048
  18. LASIX [Concomitant]
     Active Substance: FUROSEMIDE
     Indication: PRODUCT USED FOR UNKNOWN INDICATION
     Route: 048
  19. CEFZON (JAPAN) [Concomitant]
     Route: 065
  20. ALDACTONE-A (JAPAN) [Suspect]
     Active Substance: SPIRONOLACTONE
     Indication: CARDIAC FAILURE CHRONIC
     Route: 065
     Dates: start: 20180216, end: 20180302
  21. EQUA [Suspect]
     Active Substance: VILDAGLIPTIN
     Route: 048
     Dates: start: 20180607
  22. TAMIFLU [Suspect]
     Active Substance: OSELTAMIVIR PHOSPHATE
     Indication: ANTIVIRAL PROPHYLAXIS
     Route: 065
     Dates: start: 20180323, end: 20180401
  23. WARFARIN [Suspect]
     Active Substance: WARFARIN
     Indication: ATRIAL FIBRILLATION
     Dosage: 2-4 MG
     Route: 048

REACTIONS (6)
  - Pemphigoid [Recovering/Resolving]
  - Rash [Not Recovered/Not Resolved]
  - Blister [Unknown]
  - Skin exfoliation [Unknown]
  - Gait disturbance [Unknown]
  - Blister rupture [Unknown]

NARRATIVE: CASE EVENT DATE: 20180302
